FAERS Safety Report 6438991-X (Version None)
Quarter: 2009Q4

REPORT INFORMATION
  Report Type: 
  Country: None (occurrence: None)
  Receive Date: 20091112
  Receipt Date: 20080903
  Transmission Date: 20100525
  Serious: Yes (Other)
  Sender: FDA-Public Use
  Company Number: 200814012

PATIENT
  Age: 74 Year
  Sex: Female
  Weight: 78.4 kg

DRUGS (23)
  1. PRIVIGEN [Suspect]
     Indication: IMMUNODEFICIENCY COMMON VARIABLE
     Dosage: 35 G Q1MO IV
     Route: 042
     Dates: start: 20080721, end: 20080721
  2. PRIVIGEN [Suspect]
     Indication: IMMUNOGLOBULINS ABNORMAL
     Dosage: 35 G Q1MO IV
     Route: 042
     Dates: start: 20080721, end: 20080721
  3. PRIVIGEN [Suspect]
     Dosage: IV
     Route: 042
     Dates: start: 20080721, end: 20080721
  4. PRIVIGEN [Suspect]
     Dosage: IV
     Route: 042
     Dates: start: 20080721, end: 20080721
  5. DIOVAN [Concomitant]
  6. HYDROCHLOROTHIAZIDE [Concomitant]
  7. CEVIMELINE [Concomitant]
  8. LEVOTHYROXINE [Concomitant]
  9. M.V.I. [Concomitant]
  10. FOLIC ACID [Concomitant]
  11. ACETYLCYSTEINE [Concomitant]
  12. COENZYME Q10 [Concomitant]
  13. MAGNESIUM [Concomitant]
  14. ASCORBIC ACID [Concomitant]
  15. VITAMIN E [Concomitant]
  16. CHROMIUM [Concomitant]
  17. ZINC [Concomitant]
  18. FISH OIL [Concomitant]
  19. VITAMIN B6 [Concomitant]
  20. VITAMIN B-12 [Concomitant]
  21. VITAMIN B3 [Concomitant]
  22. RESVERATROL [Concomitant]
  23. OMEPRAZOLE [Concomitant]

REACTIONS (2)
  - CHEST PAIN [None]
  - CHILLS [None]
